FAERS Safety Report 8177544-2 (Version None)
Quarter: 2012Q1

REPORT INFORMATION
  Report Type: 
  Country: None (occurrence: None)
  Receive Date: 20120301
  Receipt Date: 20120224
  Transmission Date: 20120608
  Serious: Yes (Life-Threatening, Hospitalization, Other)
  Sender: FDA-Public Use
  Company Number: US-ACTELION-A-US2012-60052

PATIENT

DRUGS (3)
  1. COUMADIN [Concomitant]
  2. TRACLEER [Suspect]
     Indication: PULMONARY ARTERIAL HYPERTENSION
     Dosage: UNK
     Route: 048
     Dates: start: 20070726
  3. VIAGRA [Concomitant]

REACTIONS (4)
  - INJECTION SITE HAEMORRHAGE [None]
  - COAGULOPATHY [None]
  - THROMBOSIS [None]
  - INJECTION SITE INFECTION [None]
